FAERS Safety Report 11782246 (Version 2)
Quarter: 2015Q4

REPORT INFORMATION
  Report Type: Spontaneous
  Country: US (occurrence: US)
  Receive Date: 20151127
  Receipt Date: 20151209
  Transmission Date: 20160305
  Serious: No
  Sender: FDA-Public Use
  Company Number: PHHY2015US154041

PATIENT
  Age: 42 Year
  Sex: Female
  Weight: 79.37 kg

DRUGS (1)
  1. ATOPICA (ANIMAL HEALTH) [Suspect]
     Active Substance: CYCLOSPORINE
     Indication: PRODUCT USED FOR UNKNOWN INDICATION
     Dosage: 1 DF, UNK
     Route: 065

REACTIONS (4)
  - Accidental exposure to product [Unknown]
  - Eye irritation [Unknown]
  - Eye swelling [Unknown]
  - Ocular hyperaemia [Unknown]
